FAERS Safety Report 8411301-4 (Version None)
Quarter: 2012Q2

REPORT INFORMATION
  Report Type: 
  Country: None (occurrence: None)
  Receive Date: 20120605
  Receipt Date: 20120530
  Transmission Date: 20120825
  Serious: Yes (Other)
  Sender: FDA-Public Use
  Company Number: US-PFIZER INC-2012131295

PATIENT

DRUGS (1)
  1. TIKOSYN [Suspect]
     Dosage: UNK

REACTIONS (3)
  - AORTIC ANEURYSM [None]
  - ANGIOPATHY [None]
  - CARDIAC DISORDER [None]
